FAERS Safety Report 4721280-9 (Version None)
Quarter: 2005Q3

REPORT INFORMATION
  Report Type: 
  Country: None (occurrence: None)
  Receive Date: 20050721
  Receipt Date: 20030604
  Transmission Date: 20060218
  Serious: Yes (Hospitalization)
  Sender: FDA-Public Use
  Company Number: US-BRISTOL-MYERS SQUIBB COMPANY-12293106

PATIENT
  Age: 86 Year
  Sex: Female
  Weight: 41 kg

DRUGS (9)
  1. COUMADIN [Suspect]
     Indication: ATRIAL FIBRILLATION
     Dosage: DOSE: 2.5 MG M-W-F AND 5 MG ON TU-TH SAT AND SUN. 25JUL03: DOSE 5MG/D.
     Route: 048
  2. NASALCROM [Concomitant]
  3. VITAMINS [Concomitant]
  4. CALCIUM GLUCONATE [Concomitant]
  5. NIACINAMIDE [Concomitant]
  6. ISOPROTERENOL HCL [Concomitant]
  7. SYNTHROID [Concomitant]
     Dosage: 29-OCT-03 DOSE REPORTED AS .88 MG, 1 TAB/DAY.
  8. DIGITEK [Concomitant]
     Dosage: 29-OCT-03 DOSE: 1 TAB/DAY.
  9. TOPROL-XL [Concomitant]

REACTIONS (8)
  - ASTHENIA [None]
  - BACK PAIN [None]
  - CONTUSION [None]
  - DECREASED ACTIVITY [None]
  - DIZZINESS [None]
  - FATIGUE [None]
  - FEELING ABNORMAL [None]
  - SPLENIC HAEMORRHAGE [None]
